FAERS Safety Report 13498523 (Version 2)
Quarter: 2017Q2

REPORT INFORMATION
  Report Type: Report from Study
  Country: US (occurrence: US)
  Receive Date: 20170501
  Receipt Date: 20170505
  Transmission Date: 20170830
  Serious: Yes (Other)
  Sender: FDA-Public Use
  Company Number: US-ROCHE-1928509

PATIENT
  Sex: Female

DRUGS (1)
  1. LUCENTIS [Suspect]
     Active Substance: RANIBIZUMAB
     Indication: NEOVASCULAR AGE-RELATED MACULAR DEGENERATION
     Dosage: ONGOING:YES
     Route: 050
     Dates: start: 2016

REACTIONS (5)
  - Gait disturbance [Unknown]
  - Glaucoma [Unknown]
  - Drug ineffective [Unknown]
  - Blindness [Unknown]
  - Hypoacusis [Unknown]
